FAERS Safety Report 7398857-8 (Version None)
Quarter: 2011Q2

REPORT INFORMATION
  Report Type: 
  Country: None (occurrence: None)
  Receive Date: 20110404
  Receipt Date: 20110404
  Transmission Date: 20111010
  Serious: Yes (Hospitalization)
  Sender: FDA-Public Use
  Company Number: None

PATIENT
  Age: 40 Year
  Sex: Female
  Weight: 60.3284 kg

DRUGS (1)
  1. YAZ [Suspect]
     Indication: PREMENSTRUAL SYNDROME
     Dosage: ONE PILL 3/.02 MG ONCE A DAY PO
     Route: 048
     Dates: start: 20090731, end: 20091001

REACTIONS (5)
  - TOOTH FRACTURE [None]
  - HEAD INJURY [None]
  - SYNCOPE [None]
  - HYPOTENSION [None]
  - LACERATION [None]
